FAERS Safety Report 16489123 (Version 1)
Quarter: 2019Q2

REPORT INFORMATION
  Report Type: Spontaneous
  Country: AU (occurrence: AU)
  Receive Date: 20190628
  Receipt Date: 20190628
  Transmission Date: 20190711
  Serious: Yes (Death, Hospitalization)
  Sender: FDA-Public Use
  Company Number: AU-STRIDES ARCOLAB LIMITED-2019SP005466

PATIENT
  Age: 84 Year
  Sex: Male

DRUGS (2)
  1. SALINE                             /00075401/ [Concomitant]
     Active Substance: SODIUM CHLORIDE
     Indication: PRODUCT USED FOR UNKNOWN INDICATION
     Dosage: UNK
     Route: 065
  2. POLYETHYLENE GLYCOL 3350. [Suspect]
     Active Substance: POLYETHYLENE GLYCOL 3350
     Indication: PRODUCT USED FOR UNKNOWN INDICATION
     Dosage: UNK, 100 ML
     Route: 065

REACTIONS (11)
  - Hypotension [Fatal]
  - Compartment syndrome [Unknown]
  - Blood lactic acid increased [Unknown]
  - Haemodynamic instability [Fatal]
  - Urticaria [Unknown]
  - Peripheral swelling [Unknown]
  - Muscle oedema [Unknown]
  - Muscle necrosis [Unknown]
  - Toxicity to various agents [Fatal]
  - Tachycardia [Fatal]
  - Acidosis [Unknown]
